FAERS Safety Report 7776623-9 (Version None)
Quarter: 2011Q3

REPORT INFORMATION
  Report Type: 
  Country: None (occurrence: None)
  Receive Date: 20110922
  Receipt Date: 20110922
  Transmission Date: 20111222
  Serious: Yes (Hospitalization)
  Sender: FDA-Public Use
  Company Number: None

PATIENT
  Age: 85 Year
  Sex: Male
  Weight: 77.5 kg

DRUGS (2)
  1. SALSALATE [Suspect]
     Indication: PAIN
     Dosage: MG EVERY DAY PO
     Route: 048
     Dates: start: 20110209, end: 20110921
  2. IBUPROFEN [Suspect]
     Dosage: 600 MG BID PO
     Route: 048
     Dates: start: 20110613, end: 20110816

REACTIONS (2)
  - CONDITION AGGRAVATED [None]
  - RENAL FAILURE [None]
